FAERS Safety Report 19015412 (Version 2)
Quarter: 2021Q2

REPORT INFORMATION
  Report Type: Spontaneous
  Country: NL (occurrence: DE)
  Receive Date: 20210316
  Receipt Date: 20210408
  Transmission Date: 20210717
  Serious: Yes (Life-Threatening, Hospitalization, Other)
  Sender: FDA-Public Use
  Company Number: DE-FRESENIUS KABI-FK202102383

PATIENT
  Age: 1 Year
  Sex: Female

DRUGS (6)
  1. VINCRISTINE [Suspect]
     Active Substance: VINCRISTINE
     Indication: GLIOMA
     Dosage: UNK
     Route: 042
     Dates: start: 20201028
  2. SULFAMETHOXAZOLE/TRIMETHOPRIM [Concomitant]
     Active Substance: SULFAMETHOXAZOLE\TRIMETHOPRIM
     Indication: ANTIFUNGAL PROPHYLAXIS
     Dosage: UNK
     Route: 065
  3. GRANISETRON [Concomitant]
     Active Substance: GRANISETRON
     Indication: CHEMOTHERAPY
     Dosage: UNK
     Route: 065
  4. CARBOPLATIN (MANUFACTURER UNKNOWN) [Suspect]
     Active Substance: CARBOPLATIN
     Indication: GLIOMA
     Dosage: UNK
     Route: 042
     Dates: start: 20201028
  5. VINCRISTINE [Suspect]
     Active Substance: VINCRISTINE
     Indication: ASTROCYTOMA, LOW GRADE
  6. CARBOPLATIN (MANUFACTURER UNKNOWN) [Suspect]
     Active Substance: CARBOPLATIN
     Indication: ASTROCYTOMA, LOW GRADE

REACTIONS (9)
  - Disease progression [Unknown]
  - Product use in unapproved indication [Unknown]
  - Visual impairment [Unknown]
  - Hydrocephalus [Recovering/Resolving]
  - Astrocytoma, low grade [Not Recovered/Not Resolved]
  - Feeding disorder [Unknown]
  - Glioma [Unknown]
  - Intracranial pressure increased [Unknown]
  - Neoplasm progression [Not Recovered/Not Resolved]

NARRATIVE: CASE EVENT DATE: 20201209
